FAERS Safety Report 10149087 (Version 1)
Quarter: 2014Q2

REPORT INFORMATION
  Report Type: Spontaneous
  Country: US (occurrence: None)
  Receive Date: 20140430
  Receipt Date: 20140430
  Transmission Date: 20141212
  Serious: Yes (Other)
  Sender: FDA-Public Use
  Company Number: 2010S1000515

PATIENT
  Age: 62 Year
  Sex: Male

DRUGS (6)
  1. FLEET PHOSPHO-SODA ORAL SALINE LAXATIVE, GINGER-LEMON FLAVOR (ORAL SOLUTION) [Suspect]
     Indication: COLONOSCOPY
     Route: 048
     Dates: start: 20060510
  2. DIAZEPAM (DIAZEPAM) [Concomitant]
  3. NORVASC (AMLODIPINE BESILATE) [Concomitant]
  4. ALLOPRIM (ALLOPURINOL) [Concomitant]
  5. ADAPTAN (GABAPENTI) [Concomitant]
  6. IBUPROFEN (IBUPROFEN) [Concomitant]

REACTIONS (20)
  - Post procedural haemorrhage [None]
  - Rectal haemorrhage [None]
  - Therapeutic response decreased [None]
  - Pain [None]
  - Local swelling [None]
  - Back pain [None]
  - Arthralgia [None]
  - Gait disturbance [None]
  - Condition aggravated [None]
  - Hypoaesthesia [None]
  - Dizziness [None]
  - Pulmonary function test abnormal [None]
  - Drug ineffective [None]
  - Laboratory test abnormal [None]
  - Renal cyst [None]
  - Renal failure [None]
  - Blister [None]
  - Intestinal mass [None]
  - Proctitis [None]
  - Telangiectasia [None]
